FAERS Safety Report 8243236-4 (Version None)
Quarter: 2012Q1

REPORT INFORMATION
  Report Type: 
  Country: None (occurrence: None)
  Receive Date: 20120329
  Receipt Date: 20120323
  Transmission Date: 20120608
  Serious: Yes (Life-Threatening)
  Sender: FDA-Public Use
  Company Number: JP-SANOFI-AVENTIS-2012SA021176

PATIENT
  Age: 67 Year
  Sex: Male
  Weight: 71 kg

DRUGS (5)
  1. LANTUS [Suspect]
     Indication: TYPE 2 DIABETES MELLITUS
     Dosage: DOSE:14 UNIT(S)
     Route: 058
     Dates: start: 20080714
  2. ALL OTHER THERAPEUTIC PRODUCTS [Concomitant]
  3. INSULIN ASPART [Concomitant]
     Indication: TYPE 2 DIABETES MELLITUS
     Dosage: 42 U/ DAYDIVIDED IN 3 DOSES (MEAL TIMES)
     Route: 058
     Dates: start: 20061113
  4. HMG COA REDUCTASE INHIBITORS [Concomitant]
  5. ACE INHIBITOR NOS [Concomitant]

REACTIONS (1)
  - NEOPLASM MALIGNANT [None]
